FAERS Safety Report 8683013 (Version 5)
Quarter: 2014Q3

REPORT INFORMATION
  Report Type: Spontaneous
  Country: US (occurrence: US)
  Receive Date: 20120725
  Receipt Date: 20140812
  Transmission Date: 20150326
  Serious: Yes (Hospitalization, Other)
  Sender: FDA-Public Use
  Company Number: US-009507513-1207USA008761

PATIENT
  Sex: Female
  Weight: 99.77 kg

DRUGS (1)
  1. NUVARING [Suspect]
     Active Substance: ETHINYL ESTRADIOL\ETONOGESTREL
     Indication: CONTRACEPTION
     Dosage: UNK
     Route: 067
     Dates: start: 200510, end: 200604

REACTIONS (6)
  - Cholecystectomy [Unknown]
  - Anogenital warts [Unknown]
  - Pulmonary embolism [Unknown]
  - Deep vein thrombosis [Unknown]
  - Constipation [Unknown]
  - Rectal fissure [Unknown]

NARRATIVE: CASE EVENT DATE: 20060409
